FAERS Safety Report 12171584 (Version 1)
Quarter: 2016Q1

REPORT INFORMATION
  Report Type: Other
  Country: IT (occurrence: IT)
  Receive Date: 20160311
  Receipt Date: 20160311
  Transmission Date: 20160526
  Serious: Yes (Hospitalization)
  Sender: FDA-Public Use
  Company Number: IT-APOTEX-2016AP006901

PATIENT
  Age: 88 Year
  Sex: Female

DRUGS (1)
  1. QUETIAPINE [Suspect]
     Active Substance: QUETIAPINE
     Indication: SENILE DEMENTIA
     Dosage: 100 MG, DAILY
     Route: 065

REACTIONS (2)
  - Blood creatine phosphokinase increased [Unknown]
  - Product use issue [Unknown]

NARRATIVE: CASE EVENT DATE: 20160217
